FAERS Safety Report 15890504 (Version 1)
Quarter: 2019Q1

REPORT INFORMATION
  Report Type: Spontaneous
  Country: FR (occurrence: FR)
  Receive Date: 20190130
  Receipt Date: 20190130
  Transmission Date: 20190417
  Serious: Yes (Hospitalization)
  Sender: FDA-Public Use
  Company Number: FR-ABBVIE-08P-056-0485394-00

PATIENT
  Age: 38 Year
  Sex: Female
  Weight: 60 kg

DRUGS (6)
  1. ISONIAZIDE [Suspect]
     Active Substance: ISONIAZID
     Indication: ATYPICAL MYCOBACTERIAL INFECTION
     Dosage: 150 MILLIGRAM, QD (150MG DAILY THEN 50MG DAILY)
     Route: 048
     Dates: start: 20080530
  2. ZECLAREN [Suspect]
     Active Substance: CLARITHROMYCIN
     Indication: ATYPICAL MYCOBACTERIAL INFECTION
     Dosage: 1000MILLIGRAMQD
     Route: 048
     Dates: start: 20080530, end: 20080726
  3. ETHAMBUTOL [Suspect]
     Active Substance: ETHAMBUTOL HYDROCHLORIDE
     Indication: ATYPICAL MYCOBACTERIAL INFECTION
     Dosage: 1000MILLIGRAMQD
     Route: 048
     Dates: start: 20080530, end: 20080726
  4. MOXIFLOXACINE [Concomitant]
     Active Substance: MOXIFLOXACIN
     Indication: PRODUCT USED FOR UNKNOWN INDICATION
     Dosage: 400MILLIGRAMQD
     Dates: start: 20080530, end: 20080724
  5. RIFABUTINE [Suspect]
     Active Substance: RIFABUTIN
     Indication: ATYPICAL MYCOBACTERIAL INFECTION
     Dosage: 300MILLIGRAMQD
     Route: 048
     Dates: start: 20080530, end: 20080726
  6. ISONIAZIDE [Suspect]
     Active Substance: ISONIAZID
     Dosage: 50 MILLIGRAM, QD (50MILLIGRAMQD)
     Route: 048
     Dates: end: 20080726

REACTIONS (10)
  - Rash maculo-papular [Recovered/Resolved]
  - Headache [Unknown]
  - Malaise [Unknown]
  - Arthralgia [Recovered/Resolved]
  - Vomiting [Recovered/Resolved]
  - Torticollis [Unknown]
  - Mouth ulceration [Unknown]
  - Eye pain [Unknown]
  - Eosinophilia [Not Recovered/Not Resolved]
  - Neck pain [Unknown]

NARRATIVE: CASE EVENT DATE: 200805
